FAERS Safety Report 21844289 (Version 1)
Quarter: 2023Q1

REPORT INFORMATION
  Report Type: Spontaneous
  Country: US (occurrence: US)
  Receive Date: 20230110
  Receipt Date: 20230110
  Transmission Date: 20230417
  Serious: No
  Sender: FDA-Public Use
  Company Number: US-SA-SAC20230110000046

PATIENT
  Sex: Female
  Weight: 71.882 kg

DRUGS (42)
  1. KEVZARA [Suspect]
     Active Substance: SARILUMAB
     Indication: Illness
     Dosage: 200 MG, QOW
     Route: 058
  2. BREO ELLIPTA [Concomitant]
     Active Substance: FLUTICASONE FUROATE\VILANTEROL TRIFENATATE
  3. ADVIL [Concomitant]
     Active Substance: IBUPROFEN
  4. PROAIR HFA [Concomitant]
     Active Substance: ALBUTEROL SULFATE
  5. ONDANSETRON [Concomitant]
     Active Substance: ONDANSETRON
  6. TRULICITY [Concomitant]
     Active Substance: DULAGLUTIDE
  7. LEVOTHYROXINE SODIUM [Concomitant]
     Active Substance: LEVOTHYROXINE SODIUM
  8. ZIPRASIDONE HYDROCHLORIDE [Concomitant]
     Active Substance: ZIPRASIDONE HYDROCHLORIDE
  9. ATORVASTATIN CALCIUM [Concomitant]
     Active Substance: ATORVASTATIN CALCIUM
  10. GAMMAKED [Concomitant]
     Active Substance: HUMAN IMMUNOGLOBULIN G
  11. ACID REDUCER [CIMETIDINE] [Concomitant]
  12. FLUTICASONE PROPIONATE [Concomitant]
     Active Substance: FLUTICASONE PROPIONATE
  13. OMEPRAZOLE [Concomitant]
     Active Substance: OMEPRAZOLE
  14. BIVIGAM [Concomitant]
     Active Substance: HUMAN IMMUNOGLOBULIN G
  15. ALGELDRATE\SODIUM ALGINATE [Concomitant]
     Active Substance: ALGELDRATE\SODIUM ALGINATE
  16. XYZAL [Concomitant]
     Active Substance: LEVOCETIRIZINE DIHYDROCHLORIDE
  17. TYLENOL [Concomitant]
     Active Substance: ACETAMINOPHEN
  18. VERAPAMIL HCL [Concomitant]
     Active Substance: VERAPAMIL HYDROCHLORIDE
  19. PANZYGA [Concomitant]
     Active Substance: HUMAN IMMUNOGLOBULIN G
  20. LAMOTRIGINE [Concomitant]
     Active Substance: LAMOTRIGINE
  21. OMEGA-3-ACID ETHYL ESTERS [Concomitant]
     Active Substance: OMEGA-3-ACID ETHYL ESTERS
  22. ALBUTEROL SULFATE [Concomitant]
     Active Substance: ALBUTEROL SULFATE
  23. MONTELUKAST SODIUM [Concomitant]
     Active Substance: MONTELUKAST SODIUM
  24. BOTOX [Concomitant]
     Active Substance: ONABOTULINUMTOXINA
  25. ZYRTEC [Concomitant]
     Active Substance: CETIRIZINE HYDROCHLORIDE
  26. BENADRYL ALLERGY [Concomitant]
     Active Substance: DIPHENHYDRAMINE HYDROCHLORIDE
  27. VITAMIN D NOS [Concomitant]
     Active Substance: VITAMIN D NOS
  28. ZINC [Concomitant]
     Active Substance: ZINC
  29. BIOTIN [Concomitant]
     Active Substance: BIOTIN
  30. COLACE [Concomitant]
     Active Substance: DOCUSATE SODIUM
  31. MUCINEX [Concomitant]
     Active Substance: GUAIFENESIN
  32. LOVAZA [Concomitant]
     Active Substance: OMEGA-3-ACID ETHYL ESTERS
  33. ASPIRIN [Concomitant]
     Active Substance: ASPIRIN
  34. SYNTHROID [Concomitant]
     Active Substance: LEVOTHYROXINE SODIUM
  35. SINGULAIR [Concomitant]
     Active Substance: MONTELUKAST SODIUM
  36. PEPCID [Concomitant]
     Active Substance: FAMOTIDINE
  37. VERAPAMIL [Concomitant]
     Active Substance: VERAPAMIL HYDROCHLORIDE
  38. PROBIOTIC 10 [BIFIDOBACTERIUM BIFIDUM;BIFIDOBACTERIUM LACTIS;LACTOBACI [Concomitant]
  39. VITAMIN C [Concomitant]
     Active Substance: ASCORBIC ACID
  40. MERIBIN [Concomitant]
  41. VYEPTI [EPTINEZUMAB JJMR] [Concomitant]
  42. REFRESH RELIEVA [Concomitant]
     Active Substance: CARBOXYMETHYLCELLULOSE SODIUM\GLYCERIN

REACTIONS (1)
  - Drug ineffective [Unknown]
